FAERS Safety Report 11681756 (Version 1)
Quarter: 2015Q4

REPORT INFORMATION
  Report Type: Report from Study
  Country: US (occurrence: US)
  Receive Date: 20151029
  Receipt Date: 20151029
  Transmission Date: 20160304
  Serious: No
  Sender: FDA-Public Use
  Company Number: PHEH2015US010946

PATIENT
  Age: 47 Year
  Sex: Female

DRUGS (1)
  1. EXJADE [Suspect]
     Active Substance: DEFERASIROX
     Indication: IRON OVERLOAD
     Dosage: 3 DF, UNK
     Route: 048
     Dates: start: 20150501, end: 20150604

REACTIONS (3)
  - Faeces discoloured [Unknown]
  - Abdominal pain upper [Unknown]
  - Diarrhoea [Unknown]
